FAERS Safety Report 23687982 (Version 3)
Quarter: 2025Q3

REPORT INFORMATION
  Report Type: Spontaneous
  Country: EU (occurrence: EU)
  Receive Date: 20240329
  Receipt Date: 20250809
  Transmission Date: 20251020
  Serious: Yes (Other)
  Sender: ALEXION PHARMACEUTICALS
  Company Number: 2024A070599

PATIENT
  Age: 66 Year
  Sex: Female

DRUGS (24)
  1. BUDESONIDE [Suspect]
     Active Substance: BUDESONIDE
     Indication: Graft versus host disease
  2. TACROLIMUS [Suspect]
     Active Substance: TACROLIMUS
     Indication: Graft versus host disease
     Route: 065
  3. TACROLIMUS [Suspect]
     Active Substance: TACROLIMUS
     Route: 065
  4. METHYLPREDNISOLONE [Suspect]
     Active Substance: METHYLPREDNISOLONE
     Indication: Graft versus host disease
     Route: 065
  5. METHYLPREDNISOLONE [Suspect]
     Active Substance: METHYLPREDNISOLONE
     Route: 065
  6. RUXOLITINIB [Suspect]
     Active Substance: RUXOLITINIB
     Indication: Graft versus host disease
     Route: 065
  7. RUXOLITINIB [Suspect]
     Active Substance: RUXOLITINIB
     Route: 065
  8. RUXOLITINIB [Suspect]
     Active Substance: RUXOLITINIB
     Route: 065
  9. RUXOLITINIB [Suspect]
     Active Substance: RUXOLITINIB
     Route: 065
  10. RUXOLITINIB [Suspect]
     Active Substance: RUXOLITINIB
     Route: 065
  11. RUXOLITINIB [Suspect]
     Active Substance: RUXOLITINIB
     Route: 065
  12. METHOTREXATE [Concomitant]
     Active Substance: METHOTREXATE
     Indication: Product used for unknown indication
     Route: 065
  13. METHOTREXATE [Concomitant]
     Active Substance: METHOTREXATE
     Route: 065
  14. METHOTREXATE [Concomitant]
     Active Substance: METHOTREXATE
     Route: 065
  15. RIFAXIMIN [Concomitant]
     Active Substance: RIFAXIMIN
     Indication: Faecal calprotectin
     Route: 065
  16. RIFAXIMIN [Concomitant]
     Active Substance: RIFAXIMIN
     Route: 065
  17. RIFAXIMIN [Concomitant]
     Active Substance: RIFAXIMIN
     Route: 065
  18. RIFAXIMIN [Concomitant]
     Active Substance: RIFAXIMIN
     Route: 065
  19. AZITHROMYCIN [Concomitant]
     Active Substance: AZITHROMYCIN
     Indication: Faecal calprotectin
     Route: 065
  20. AZITHROMYCIN [Concomitant]
     Active Substance: AZITHROMYCIN
     Route: 065
  21. AZITHROMYCIN [Concomitant]
     Active Substance: AZITHROMYCIN
     Route: 065
  22. CYCLOSPORINE [Concomitant]
     Active Substance: CYCLOSPORINE
     Indication: Product used for unknown indication
     Route: 065
  23. CYCLOSPORINE [Concomitant]
     Active Substance: CYCLOSPORINE
     Route: 065
  24. CYCLOSPORINE [Concomitant]
     Active Substance: CYCLOSPORINE
     Route: 065

REACTIONS (14)
  - Epstein-Barr virus infection reactivation [Unknown]
  - Pneumatosis intestinalis [Unknown]
  - Cardiac failure [Unknown]
  - Type 2 diabetes mellitus [Unknown]
  - Hypogammaglobulinaemia [Unknown]
  - Cytomegalovirus infection [Unknown]
  - Myopathy [Unknown]
  - Asthenia [Unknown]
  - Hypoalbuminaemia [Unknown]
  - Cognitive disorder [Unknown]
  - Platelet count abnormal [Unknown]
  - Haemorrhagic diathesis [Unknown]
  - Hypoproteinaemia [Unknown]
  - Off label use [Unknown]
